FAERS Safety Report 15125082 (Version 1)
Quarter: 2018Q3

REPORT INFORMATION
  Report Type: Report from Study
  Country: BR (occurrence: BR)
  Receive Date: 20180710
  Receipt Date: 20180710
  Transmission Date: 20181010
  Serious: Yes (Other)
  Sender: FDA-Public Use
  Company Number: PHHY2018BR028424

PATIENT
  Age: 61 Year
  Sex: Male
  Weight: 75 kg

DRUGS (3)
  1. VOTRIENT [Suspect]
     Active Substance: PAZOPANIB HYDROCHLORIDE
     Indication: RENAL CANCER
     Dosage: 800 MG, QD
     Route: 048
     Dates: start: 201801
  2. VOTRIENT [Suspect]
     Active Substance: PAZOPANIB HYDROCHLORIDE
     Indication: LUNG CANCER METASTATIC
  3. VOTRIENT [Suspect]
     Active Substance: PAZOPANIB HYDROCHLORIDE
     Indication: PULMONARY MASS

REACTIONS (11)
  - Pain in extremity [Not Recovered/Not Resolved]
  - Sensitisation [Unknown]
  - Dysentery [Not Recovered/Not Resolved]
  - Neoplasm malignant [Unknown]
  - Anxiety [Unknown]
  - Skin atrophy [Unknown]
  - Dysentery [Recovered/Resolved]
  - Oropharyngeal pain [Unknown]
  - Mass [Unknown]
  - Hair colour changes [Not Recovered/Not Resolved]
  - Pain in extremity [Recovered/Resolved]

NARRATIVE: CASE EVENT DATE: 20180619
